FAERS Safety Report 5262291-7 (Version None)
Quarter: 2007Q1

REPORT INFORMATION
  Report Type: 
  Country: None (occurrence: None)
  Receive Date: 20070308
  Receipt Date: 20070222
  Transmission Date: 20070707
  Serious: Yes (Life-Threatening, Hospitalization)
  Sender: FDA-Public Use
  Company Number: T200700263

PATIENT
  Age: 31 Year
  Sex: Male

DRUGS (3)
  1. METHYLIN(METHYLPHENIDATE HCL) TABLET, 10MG [Suspect]
     Dosage: 10 TABLETS, ORAL
     Route: 048
  2. IBUPROFEN [Suspect]
     Dosage: 20 TABLETS, ORAL
     Route: 048
  3. ETHANOL(ETHANOL) [Suspect]
     Dosage: ORAL
     Route: 048

REACTIONS (2)
  - ADRENERGIC SYNDROME [None]
  - DRUG TOXICITY [None]
